FAERS Safety Report 18368193 (Version 2)
Quarter: 2020Q4

REPORT INFORMATION
  Report Type: Spontaneous
  Country: US (occurrence: US)
  Receive Date: 20201009
  Receipt Date: 20201015
  Transmission Date: 20210114
  Serious: No
  Sender: FDA-Public Use
  Company Number: US-PFIZER INC-2020166621

PATIENT
  Age: 67 Year
  Sex: Male
  Weight: 90.72 kg

DRUGS (4)
  1. RAPAMUNE [Suspect]
     Active Substance: SIROLIMUS
     Indication: ALLOGENIC STEM CELL TRANSPLANTATION
  2. RAPAMUNE [Suspect]
     Active Substance: SIROLIMUS
     Indication: PROLYMPHOCYTIC LEUKAEMIA
     Dosage: 3 DF, DAILY
  3. RAPAMUNE [Suspect]
     Active Substance: SIROLIMUS
     Indication: BONE MARROW DISORDER
  4. RAPAMUNE [Suspect]
     Active Substance: SIROLIMUS
     Indication: GRAFT VERSUS HOST DISEASE
     Dosage: 1 MG, 1X/DAY
     Route: 048

REACTIONS (2)
  - Off label use [Unknown]
  - Product use in unapproved indication [Unknown]
